FAERS Safety Report 7750394-4 (Version None)
Quarter: 2011Q3

REPORT INFORMATION
  Report Type: 
  Country: None (occurrence: None)
  Receive Date: 20110912
  Receipt Date: 20110905
  Transmission Date: 20111222
  Serious: Yes (Hospitalization)
  Sender: FDA-Public Use
  Company Number: CO-001963

PATIENT
  Age: 8 Year
  Sex: Female

DRUGS (1)
  1. NAGLAZYME [Suspect]
     Indication: MUCOPOLYSACCHARIDOSIS VI
     Dosage: (15 MG/KG 1X/WEEK INTRAVENOUS DRIP)
     Route: 041
     Dates: start: 20110527

REACTIONS (3)
  - PNEUMONIA BACTERIAL [None]
  - RESPIRATORY FAILURE [None]
  - MYCOPLASMA INFECTION [None]
